FAERS Safety Report 5429536-1 (Version None)
Quarter: 2007Q3

REPORT INFORMATION
  Report Type: 
  Country: None (occurrence: None)
  Receive Date: 20070829
  Receipt Date: 20070530
  Transmission Date: 20080115
  Serious: No
  Sender: FDA-Public Use
  Company Number: A0643154A

PATIENT
  Sex: Female

DRUGS (7)
  1. BECLOMETHASONE DIPROPIONATE [Suspect]
     Indication: ASTHMA
     Route: 065
  2. FORADIL [Suspect]
     Indication: ASTHMA
  3. PLACEBO [Suspect]
     Indication: ASTHMA
  4. NEBULIZER [Suspect]
     Indication: ASTHMA
     Route: 055
     Dates: start: 20070201
  5. XOPENEX [Concomitant]
     Indication: ASTHMA
  6. FLONASE [Concomitant]
  7. ALLEGRA D 24 HOUR [Concomitant]

REACTIONS (5)
  - DYSPNOEA [None]
  - MALAISE [None]
  - NAUSEA [None]
  - VOMITING [None]
  - WRONG DRUG ADMINISTERED [None]
